FAERS Safety Report 9268195 (Version 3)
Quarter: 2014Q1

REPORT INFORMATION
  Report Type: Report from Study
  Country: US (occurrence: US)
  Receive Date: 20130502
  Receipt Date: 20140213
  Transmission Date: 20141002
  Serious: Yes (Death, Hospitalization)
  Sender: FDA-Public Use
  Company Number: US-SANOFI-AVENTIS-2013SA045105

PATIENT
  Age: 62 Year
  Sex: Female

DRUGS (1)
  1. AUBAGIO [Suspect]
     Route: 048
     Dates: start: 20130301, end: 20130408

REACTIONS (4)
  - Multi-organ failure [Fatal]
  - Sepsis [Fatal]
  - Renal failure [Fatal]
  - Urinary tract infection [Not Recovered/Not Resolved]
